FAERS Safety Report 9729438 (Version 1)
Quarter: 2013Q4

REPORT INFORMATION
  Report Type: Spontaneous
  Country: US (occurrence: US)
  Receive Date: 20131204
  Receipt Date: 20131204
  Transmission Date: 20140711
  Serious: No
  Sender: FDA-Public Use
  Company Number: US-GILEAD-2009-0021334

PATIENT
  Sex: Male
  Weight: 79.38 kg

DRUGS (7)
  1. LETAIRIS [Suspect]
     Indication: PULMONARY ARTERIAL HYPERTENSION
     Route: 048
     Dates: start: 20090313
  2. WARFARIN [Concomitant]
  3. CRESTOR [Concomitant]
  4. TRICOR [Concomitant]
  5. COREG [Concomitant]
  6. AVODART [Concomitant]
  7. FLOMAX [Concomitant]

REACTIONS (1)
  - Pruritus [Unknown]
